FAERS Safety Report 14381139 (Version 3)
Quarter: 2018Q1

REPORT INFORMATION
  Report Type: Report from Study
  Country: DE (occurrence: DE)
  Receive Date: 20180112
  Receipt Date: 20180314
  Transmission Date: 20180509
  Serious: Yes (Other)
  Sender: FDA-Public Use
  Company Number: DE-PFIZER INC-2018012945

PATIENT
  Age: 57 Year
  Sex: Male

DRUGS (18)
  1. 5-FU [Suspect]
     Active Substance: FLUOROURACIL
     Indication: COLORECTAL CANCER METASTATIC
     Dosage: 4900 MG, CYCLIC
     Route: 041
     Dates: start: 20151020, end: 20151020
  2. ATROPINE SULFATE. [Concomitant]
     Active Substance: ATROPINE SULFATE
     Dosage: UNK
     Dates: start: 20150822, end: 20151201
  3. SIMVASTATIN. [Concomitant]
     Active Substance: SIMVASTATIN
     Dosage: UNK
  4. AFLIBERCEPT [Suspect]
     Active Substance: AFLIBERCEPT
     Dosage: 330 MG, CYCLIC
     Route: 041
     Dates: start: 20151020
  5. NOVAMINSULFON [Concomitant]
     Active Substance: METAMIZOLE
     Dosage: UNK
  6. GRANISETRON [Concomitant]
     Active Substance: GRANISETRON
     Dosage: UNK
     Dates: start: 20150922
  7. LEUCOVORIN. [Suspect]
     Active Substance: LEUCOVORIN
     Dosage: 830 MG, CYCLIC
     Route: 041
     Dates: start: 20151020
  8. IRINOTECAN HCL [Suspect]
     Active Substance: IRINOTECAN HYDROCHLORIDE
     Dosage: 370 MG, CYCLIC
     Route: 041
     Dates: start: 20151020
  9. 5-FU [Suspect]
     Active Substance: FLUOROURACIL
     Dosage: 4900 MG, CYCLIC
     Route: 041
     Dates: start: 20150922, end: 20150922
  10. CLOPIDOGREL [Concomitant]
     Active Substance: CLOPIDOGREL BISULFATE
     Dosage: UNK
  11. LEUCOVORIN. [Suspect]
     Active Substance: LEUCOVORIN
     Indication: COLORECTAL CANCER METASTATIC
     Dosage: 830 MG, CYCLIC
     Route: 041
     Dates: start: 20150922, end: 20150922
  12. IRINOTECAN HCL [Suspect]
     Active Substance: IRINOTECAN HYDROCHLORIDE
     Indication: COLORECTAL CANCER METASTATIC
     Dosage: 370 MG, CYCLIC
     Route: 041
     Dates: start: 20150922, end: 20150922
  13. AFLIBERCEPT [Suspect]
     Active Substance: AFLIBERCEPT
     Indication: COLORECTAL CANCER METASTATIC
     Dosage: 330 MG, CYCLIC
     Route: 041
     Dates: start: 20150922, end: 20150922
  14. 5-FU [Suspect]
     Active Substance: FLUOROURACIL
     Dosage: 830 MG, CYCLIC
     Route: 040
     Dates: start: 20150922, end: 20150922
  15. AMLODIPIN [Concomitant]
     Active Substance: AMLODIPINE BESYLATE
     Dosage: UNK
  16. 5-FU [Suspect]
     Active Substance: FLUOROURACIL
     Dosage: 830 MG, CYCLIC
     Route: 040
     Dates: start: 20151020
  17. ALIZAPRIDE HYDROCHLORIDE [Concomitant]
     Active Substance: ALIZAPRIDE HYDROCHLORIDE
     Dosage: UNK
     Dates: start: 20150922
  18. CALCIUM PHOSPHATE [Concomitant]
     Active Substance: CALCIUM PHOSPHATE
     Dosage: UNK

REACTIONS (5)
  - Fatigue [Recovered/Resolved]
  - Overdose [Unknown]
  - Dyspepsia [Recovered/Resolved]
  - Thrombocytopenia [Recovered/Resolved]
  - Inappropriate schedule of drug administration [Unknown]

NARRATIVE: CASE EVENT DATE: 20151020
